FAERS Safety Report 5248884-1 (Version None)
Quarter: 2007Q1

REPORT INFORMATION
  Report Type: 
  Country: None (occurrence: None)
  Receive Date: 20070228
  Receipt Date: 20060404
  Transmission Date: 20070707
  Serious: No
  Sender: FDA-Public Use
  Company Number: US-GLAXOSMITHKLINE-A0600345A

PATIENT
  Age: 27 Year
  Sex: Female

DRUGS (3)
  1. VALTREX [Suspect]
     Dosage: 500MG PER DAY
     Route: 048
  2. CYCLESSA [Concomitant]
  3. SEASONALE [Concomitant]

REACTIONS (5)
  - DRY SKIN [None]
  - HYPERAESTHESIA [None]
  - LOCAL SWELLING [None]
  - PAIN [None]
  - RASH MACULAR [None]
